FAERS Safety Report 7951355-2 (Version None)
Quarter: 2011Q4

REPORT INFORMATION
  Report Type: 
  Country: None (occurrence: None)
  Receive Date: 20111201
  Receipt Date: 20111128
  Transmission Date: 20120403
  Serious: Yes (Life-Threatening, Hospitalization)
  Sender: FDA-Public Use
  Company Number: BE-AMGEN-BELSP2011056023

PATIENT
  Age: 57 Year
  Sex: Male
  Weight: 110 kg

DRUGS (2)
  1. ENBREL [Suspect]
     Indication: PSORIASIS
     Dosage: 50 MG, WEEKLY
     Route: 058
     Dates: start: 20110601, end: 20111018
  2. ASCORBIC ACID [Suspect]
     Indication: INFLUENZA LIKE ILLNESS
     Dosage: UNK
     Route: 048
     Dates: start: 20111016, end: 20111018

REACTIONS (1)
  - ANAPHYLACTIC SHOCK [None]
